FAERS Safety Report 4589711-5 (Version None)
Quarter: 2005Q1

REPORT INFORMATION
  Report Type: 
  Country: None (occurrence: None)
  Receive Date: 20050217
  Receipt Date: 20050202
  Transmission Date: 20050727
  Serious: Yes (Hospitalization)
  Sender: FDA-Public Use
  Company Number: 2005-FF-00069FF

PATIENT
  Age: 46 Year
  Sex: Male

DRUGS (6)
  1. VIRAMUNE [Suspect]
     Indication: HIV INFECTION
     Route: 048
     Dates: start: 20031215, end: 20041125
  2. VIRAMUNE [Suspect]
     Indication: HIV INFECTION
     Route: 048
     Dates: start: 20041202
  3. DEPAKENE [Concomitant]
  4. CRIXIVAN [Concomitant]
  5. NORVIR [Concomitant]
  6. ZERIT [Concomitant]

REACTIONS (1)
  - PANCREATITIS ACUTE [None]
